FAERS Safety Report 6923912-3 (Version None)
Quarter: 2010Q3

REPORT INFORMATION
  Report Type: 
  Country: None (occurrence: None)
  Receive Date: 20100813
  Receipt Date: 20100803
  Transmission Date: 20110219
  Serious: Yes (Other)
  Sender: FDA-Public Use
  Company Number: DE-GILEAD-2010-0030762

PATIENT
  Sex: Female
  Weight: 66 kg

DRUGS (8)
  1. CAYSTON [Suspect]
     Indication: CYSTIC FIBROSIS
     Route: 055
     Dates: start: 20100712
  2. CAYSTON [Suspect]
     Indication: PSEUDOMONAS INFECTION
  3. CREON [Concomitant]
     Indication: CYSTIC FIBROSIS
     Route: 048
  4. PANTOZOL [Concomitant]
     Indication: CYSTIC FIBROSIS
     Dates: start: 20100501
  5. SULTANOL [Concomitant]
     Indication: CYSTIC FIBROSIS
     Route: 055
  6. SODIUM CHLORIDE [Concomitant]
     Indication: CYSTIC FIBROSIS
     Route: 055
  7. AZITHROMYCIN [Concomitant]
     Indication: CYSTIC FIBROSIS
  8. PULMOZYME [Concomitant]
     Indication: CYSTIC FIBROSIS
     Route: 055

REACTIONS (1)
  - HAEMOPTYSIS [None]
